FAERS Safety Report 24286587 (Version 1)
Quarter: 2024Q3

REPORT INFORMATION
  Report Type: Spontaneous
  Country: US (occurrence: US)
  Receive Date: 20240905
  Receipt Date: 20240905
  Transmission Date: 20241016
  Serious: Yes (Other)
  Sender: BRISTOL MYERS SQUIBB
  Company Number: US-BRISTOL-MYERS SQUIBB COMPANY-2024-139897

PATIENT
  Age: 76 Year
  Sex: Female
  Weight: 92.53 kg

DRUGS (1)
  1. REVLIMID [Suspect]
     Active Substance: LENALIDOMIDE
     Indication: Plasmacytoma
     Dosage: ONCE DAILY FOR 21 DAYS
     Route: 048

REACTIONS (2)
  - Tumour lysis syndrome [Recovering/Resolving]
  - Off label use [Unknown]
